FAERS Safety Report 21547762 (Version 1)
Quarter: 2022Q4

REPORT INFORMATION
  Report Type: Spontaneous
  Country: US (occurrence: US)
  Receive Date: 20221103
  Receipt Date: 20221103
  Transmission Date: 20230112
  Serious: Yes (Hospitalization, Other)
  Sender: FDA-Public Use
  Company Number: US-BAXTER-2022BAX023015

PATIENT
  Age: 68 Year
  Sex: Male

DRUGS (3)
  1. BUPIVACAINE [Suspect]
     Active Substance: BUPIVACAINE
     Indication: Pain management
     Dosage: 2.75 MG/ML, PUMP
     Route: 037
  2. CLONIDINE [Suspect]
     Active Substance: CLONIDINE
     Indication: Pain management
     Dosage: 70 MCG/ML, PUMP
     Route: 037
  3. MORPHINE [Suspect]
     Active Substance: MORPHINE
     Indication: Pain management
     Dosage: 3.5 MG/ML, PUMP
     Route: 037

REACTIONS (8)
  - Systemic toxicity [Recovered/Resolved]
  - Lethargy [Recovered/Resolved]
  - Hypotension [Recovered/Resolved]
  - Hypokalaemia [Recovered/Resolved]
  - Bradycardia [Recovered/Resolved]
  - Paralysis [Recovered/Resolved]
  - Sensory loss [Recovered/Resolved]
  - Product administration error [Unknown]
